FAERS Safety Report 4341089-8 (Version None)
Quarter: 2004Q2

REPORT INFORMATION
  Report Type: 
  Country: None (occurrence: None)
  Receive Date: 20040419
  Receipt Date: 20040408
  Transmission Date: 20050107
  Serious: Yes (Hospitalization)
  Sender: FDA-Public Use
  Company Number: FR-ROCHE-364024

PATIENT
  Sex: Male

DRUGS (2)
  1. FUZEON [Suspect]
     Indication: DRUG USE FOR UNKNOWN INDICATION
     Route: 065
  2. TIPRANAVIR [Concomitant]

REACTIONS (5)
  - EOSINOPHILIA [None]
  - KERATITIS [None]
  - OEDEMA [None]
  - PRURITUS [None]
  - PYREXIA [None]
